FAERS Safety Report 12411089 (Version 3)
Quarter: 2016Q3

REPORT INFORMATION
  Report Type: Report from Study
  Country: CA (occurrence: CA)
  Receive Date: 20160527
  Receipt Date: 20160705
  Transmission Date: 20161109
  Serious: Yes (Hospitalization, Other)
  Sender: FDA-Public Use
  Company Number: CA-AMGEN-CANSL2016066770

PATIENT
  Age: 70 Year
  Sex: Female

DRUGS (1)
  1. ARANESP [Suspect]
     Active Substance: DARBEPOETIN ALFA
     Indication: CHRONIC KIDNEY DISEASE
     Dosage: 10 MUG, UNK
     Route: 065
     Dates: start: 20151201

REACTIONS (6)
  - Hospitalisation [Recovered/Resolved]
  - Acute kidney injury [Unknown]
  - Malaise [Unknown]
  - Dialysis [Unknown]
  - Feeling abnormal [Unknown]
  - Escherichia sepsis [Unknown]
